FAERS Safety Report 20810969 (Version 2)
Quarter: 2022Q2

REPORT INFORMATION
  Report Type: Spontaneous
  Country: US (occurrence: None)
  Receive Date: 20220510
  Receipt Date: 20220511
  Transmission Date: 20220720
  Serious: Yes (Hospitalization)
  Sender: FDA-Public Use
  Company Number: US-ROCHE-3089786

PATIENT
  Sex: Male

DRUGS (2)
  1. ESBRIET [Suspect]
     Active Substance: PIRFENIDONE
     Indication: Idiopathic pulmonary fibrosis
     Dosage: TAKE 3 TABLETS 3 TIMES DAILY WITH FOOD
     Route: 048
     Dates: start: 20210210
  2. ESBRIET [Concomitant]
     Active Substance: PIRFENIDONE
     Route: 048

REACTIONS (1)
  - Pulmonary oedema [Unknown]
